FAERS Safety Report 4948887-8 (Version None)
Quarter: 2006Q1

REPORT INFORMATION
  Report Type: 
  Country: None (occurrence: None)
  Receive Date: 20060316
  Receipt Date: 20060309
  Transmission Date: 20060701
  Serious: Yes (Hospitalization)
  Sender: FDA-Public Use
  Company Number: 222913

PATIENT
  Age: 47 Year
  Sex: Male
  Weight: 83.4 kg

DRUGS (5)
  1. ERLOTINIB (ERLOTINIB) TABLET [Suspect]
     Indication: SQUAMOUS CELL CARCINOMA
     Dosage: 100 MG, QD, ORAL
     Route: 048
  2. AVASTIN [Suspect]
     Indication: SQUAMOUS CELL CARCINOMA
     Dosage: 10 MG/KG, Q2W, INTRAVENOUS
     Route: 042
     Dates: end: 20060201
  3. CISPLATIN [Concomitant]
  4. PRILOSEC [Concomitant]
  5. ZOFRAN [Concomitant]

REACTIONS (6)
  - HEART RATE INCREASED [None]
  - ODYNOPHAGIA [None]
  - POST PROCEDURAL COMPLICATION [None]
  - PYREXIA [None]
  - VIRAL INFECTION [None]
  - WHITE BLOOD CELL COUNT DECREASED [None]
